FAERS Safety Report 5240166-7 (Version None)
Quarter: 2007Q1

REPORT INFORMATION
  Report Type: 
  Country: None (occurrence: None)
  Receive Date: 20070216
  Receipt Date: 20070213
  Transmission Date: 20070707
  Serious: Yes (Other)
  Sender: FDA-Public Use
  Company Number: FR-PFIZER INC-2007011779

PATIENT
  Age: 60 Year
  Sex: Female

DRUGS (2)
  1. CELEBREX [Suspect]
     Dates: start: 20070209, end: 20070211
  2. PERINDOPRIL ERBUMINE [Suspect]
     Indication: HYPERTENSION

REACTIONS (1)
  - ORTHOSTATIC HYPOTENSION [None]
